FAERS Safety Report 8169928-3 (Version None)
Quarter: 2012Q1

REPORT INFORMATION
  Report Type: 
  Country: None (occurrence: None)
  Receive Date: 20120228
  Receipt Date: 20120228
  Transmission Date: 20120608
  Serious: Yes (Other)
  Sender: FDA-Public Use
  Company Number: None

PATIENT
  Sex: Male

DRUGS (1)
  1. OXYBUTYNIN CHLORIDE [Suspect]
     Indication: MICTURITION URGENCY

REACTIONS (4)
  - LIP SWELLING [None]
  - SWOLLEN TONGUE [None]
  - OEDEMA MOUTH [None]
  - NASAL CONGESTION [None]
